FAERS Safety Report 6842545-0 (Version None)
Quarter: 2010Q3

REPORT INFORMATION
  Report Type: 
  Country: None (occurrence: None)
  Receive Date: 20100714
  Receipt Date: 20070731
  Transmission Date: 20110219
  Serious: No
  Sender: FDA-Public Use
  Company Number: US-PFIZER INC-2007064867

PATIENT
  Sex: Female
  Weight: 57.272 kg

DRUGS (7)
  1. CHANTIX [Suspect]
     Indication: SMOKING CESSATION THERAPY
     Dates: start: 20070701, end: 20070701
  2. NEXIUM [Concomitant]
  3. MEDROXYPROGESTERONE [Concomitant]
  4. CENESTIN [Concomitant]
  5. LOTREL [Concomitant]
     Indication: BLOOD PRESSURE
     Dosage: 10/20
     Dates: end: 20070101
  6. AMLODIPINE BESYLATE AND BENAZEPRIL HCL [Concomitant]
     Dosage: 10/20
     Dates: start: 20070101
  7. FLONASE [Concomitant]

REACTIONS (3)
  - ABDOMINAL PAIN [None]
  - HYSTERECTOMY [None]
  - NAUSEA [None]
